FAERS Safety Report 6018358-9 (Version None)
Quarter: 2008Q4

REPORT INFORMATION
  Report Type: 
  Country: None (occurrence: None)
  Receive Date: 20081223
  Receipt Date: 20081212
  Transmission Date: 20090506
  Serious: Yes (Hospitalization)
  Sender: FDA-Public Use
  Company Number: GR-PFIZER INC-2008152690

PATIENT

DRUGS (3)
  1. METHYLPREDNISOLONE AND METHYLPREDNISOLONE ACETATE AND METHYLPREDNISOLO [Suspect]
     Indication: DERMATOMYOSITIS
  2. CEFUROXIME AXETIL [Concomitant]
     Indication: UPPER RESPIRATORY TRACT INFECTION
  3. AZATHIOPRINE [Concomitant]
     Dosage: 50 MG, 1X/DAY

REACTIONS (1)
  - LISTERIOSIS [None]
